FAERS Safety Report 8887365 (Version 1)
Quarter: 2012Q4

REPORT INFORMATION
  Report Type: Spontaneous
  Country: US (occurrence: None)
  Receive Date: 20121101
  Receipt Date: 20121101
  Transmission Date: 20130627
  Serious: No
  Sender: FDA-Public Use
  Company Number: None

PATIENT
  Sex: Male

DRUGS (2)
  1. CYCLOSPORINE [Suspect]
     Indication: IMMUNOSUPPRESSANT DRUG THERAPY
  2. CYCLOSPORINE [Suspect]
     Indication: LIVER TRANSPLANT

REACTIONS (3)
  - Posterior reversible encephalopathy syndrome [None]
  - Hypertension [None]
  - Neurotoxicity [None]
